FAERS Safety Report 9329608 (Version 1)
Quarter: 2013Q2

REPORT INFORMATION
  Report Type: Spontaneous
  Country: US (occurrence: US)
  Receive Date: 20130604
  Receipt Date: 20130604
  Transmission Date: 20140414
  Serious: Yes (Other)
  Sender: FDA-Public Use
  Company Number: PHHY2013US054377

PATIENT
  Age: 37 Year
  Sex: Female

DRUGS (1)
  1. PARACETAMOL [Suspect]
     Route: 048

REACTIONS (11)
  - Encephalopathy [Recovered/Resolved]
  - Brain herniation [Recovered/Resolved]
  - Extensor plantar response [Recovered/Resolved]
  - Clonus [Recovered/Resolved]
  - Posturing [Recovered/Resolved]
  - Coagulopathy [Recovered/Resolved]
  - Toxicity to various agents [Recovered/Resolved]
  - Neurological decompensation [Recovered/Resolved]
  - International normalised ratio increased [Unknown]
  - Liver function test abnormal [Recovering/Resolving]
  - Hyperbilirubinaemia [Recovering/Resolving]
